FAERS Safety Report 10103497 (Version 1)
Quarter: 2014Q2

REPORT INFORMATION
  Report Type: Spontaneous
  Country: US (occurrence: US)
  Receive Date: 20140424
  Receipt Date: 20140424
  Transmission Date: 20141212
  Serious: No
  Sender: FDA-Public Use
  Company Number: US-BRISTOL-MYERS SQUIBB COMPANY-20462172

PATIENT
  Age: 85 Year
  Sex: Male
  Weight: 64.4 kg

DRUGS (2)
  1. ELIQUIS [Suspect]
     Dosage: 1DF=5MG,1.5 TABLETS
     Dates: start: 2014
  2. VITAMINS [Concomitant]

REACTIONS (4)
  - Rash [Unknown]
  - Pruritus [Unknown]
  - Contusion [Unknown]
  - Wrong technique in drug usage process [Unknown]
